FAERS Safety Report 11790266 (Version 2)
Quarter: 2015Q4

REPORT INFORMATION
  Report Type: Report from Study
  Country: US (occurrence: US)
  Receive Date: 20151201
  Receipt Date: 20151203
  Transmission Date: 20160305
  Serious: Yes (Death, Hospitalization)
  Sender: FDA-Public Use
  Company Number: US-BIOGENIDEC-2015BI070100

PATIENT
  Age: 51 Year
  Sex: Male
  Weight: 99 kg

DRUGS (12)
  1. TYSABRI [Suspect]
     Active Substance: NATALIZUMAB
     Indication: MULTIPLE SCLEROSIS
     Route: 042
     Dates: start: 20060914, end: 20070315
  2. COLACE [Concomitant]
     Active Substance: DOCUSATE SODIUM
  3. BACLOFEN. [Concomitant]
     Active Substance: BACLOFEN
  4. MILK OF MAGNESIA [Concomitant]
     Active Substance: MAGNESIUM HYDROXIDE
  5. TYSABRI [Suspect]
     Active Substance: NATALIZUMAB
     Indication: MULTIPLE SCLEROSIS
     Route: 042
     Dates: end: 20150413
  6. BACLOFEN. [Concomitant]
     Active Substance: BACLOFEN
  7. TYLENOL [Concomitant]
     Active Substance: ACETAMINOPHEN
  8. LASIX [Concomitant]
     Active Substance: FUROSEMIDE
  9. SYNTHROID [Concomitant]
     Active Substance: LEVOTHYROXINE SODIUM
  10. NICORETTE [Concomitant]
     Active Substance: NICOTINE
  11. PRILOSEC [Concomitant]
     Active Substance: OMEPRAZOLE MAGNESIUM
  12. TYSABRI [Suspect]
     Active Substance: NATALIZUMAB
     Indication: MULTIPLE SCLEROSIS
     Route: 042
     Dates: start: 20070608, end: 20150224

REACTIONS (9)
  - Depression suicidal [Unknown]
  - Emotional distress [Unknown]
  - Feeling of despair [Unknown]
  - Haemoglobin increased [Unknown]
  - Death [Fatal]
  - Globulins increased [Unknown]
  - Self-injurious ideation [Unknown]
  - Anger [Unknown]
  - Suicidal ideation [Unknown]

NARRATIVE: CASE EVENT DATE: 20141117
